FAERS Safety Report 8483642-6 (Version None)
Quarter: 2012Q3

REPORT INFORMATION
  Report Type: 
  Country: None (occurrence: None)
  Receive Date: 20120702
  Receipt Date: 20120619
  Transmission Date: 20120928
  Serious: Yes (Hospitalization)
  Sender: FDA-Public Use
  Company Number: US-MYLANLABS-2012S1012578

PATIENT
  Age: 79 Year
  Sex: Female

DRUGS (2)
  1. COTRIM [Interacting]
     Route: 065
  2. CITALOPRAM HYDROBROMIDE [Suspect]
     Route: 065

REACTIONS (3)
  - INAPPROPRIATE ANTIDIURETIC HORMONE SECRETION [None]
  - DRUG INTERACTION [None]
  - HYPONATRAEMIA [None]
